FAERS Safety Report 5397416-6 (Version None)
Quarter: 2007Q3

REPORT INFORMATION
  Report Type: 
  Country: None (occurrence: None)
  Receive Date: 20070718
  Receipt Date: 20061229
  Transmission Date: 20080115
  Serious: Yes (Death, Other)
  Sender: FDA-Public Use
  Company Number: 2006109489

PATIENT
  Age: 77 Year
  Sex: Male
  Weight: 72.6 kg

DRUGS (2)
  1. CELEBREX [Suspect]
     Indication: COLON CANCER
     Dosage: 200 MG (100 MG, 2 IN 1 D)
     Dates: start: 20011204, end: 20020504
  2. CELEBREX [Suspect]
     Indication: PAIN MANAGEMENT
     Dosage: 200 MG (100 MG, 2 IN 1 D)
     Dates: start: 20011204, end: 20020504

REACTIONS (1)
  - CEREBROVASCULAR ACCIDENT [None]
